FAERS Safety Report 8671683 (Version 2)
Quarter: 2013Q2

REPORT INFORMATION
  Report Type: Report from Study
  Country: BR (occurrence: BR)
  Receive Date: 20120718
  Receipt Date: 20130401
  Transmission Date: 20140414
  Serious: Yes (Hospitalization)
  Sender: FDA-Public Use
  Company Number: BR-ROCHE-1079759

PATIENT
  Sex: Female
  Weight: 87 kg

DRUGS (5)
  1. ACTEMRA [Suspect]
     Indication: RHEUMATOID ARTHRITIS
     Route: 042
     Dates: start: 20110525
  2. CALCORT [Concomitant]
  3. LOSARTAN [Concomitant]
  4. PANTOPRAZOLE [Concomitant]
  5. LASIX [Concomitant]

REACTIONS (20)
  - Joint injury [Not Recovered/Not Resolved]
  - Osteoarthritis [Recovered/Resolved]
  - Pain [Not Recovered/Not Resolved]
  - Swelling [Recovered/Resolved]
  - Liver disorder [Not Recovered/Not Resolved]
  - Arrhythmia [Recovered/Resolved]
  - Osteoarthritis [Not Recovered/Not Resolved]
  - Glucose tolerance impaired [Not Recovered/Not Resolved]
  - Spleen disorder [Not Recovered/Not Resolved]
  - Tendonitis [Recovered/Resolved]
  - Diabetes mellitus [Recovered/Resolved]
  - Feeling abnormal [Recovered/Resolved]
  - Nausea [Recovered/Resolved]
  - Asthenia [Recovered/Resolved]
  - Fatigue [Recovered/Resolved]
  - Malaise [Recovered/Resolved]
  - Pain [Recovered/Resolved]
  - Thyroid disorder [Recovered/Resolved]
  - Hypertension [Recovered/Resolved]
  - Weight increased [Recovered/Resolved]
